FAERS Safety Report 9777098 (Version 3)
Quarter: 2016Q2

REPORT INFORMATION
  Report Type: Report from Study
  Country: FR (occurrence: FR)
  Receive Date: 20131221
  Receipt Date: 20160520
  Transmission Date: 20160815
  Serious: Yes (Hospitalization)
  Sender: FDA-Public Use
  Company Number: FR-ROCHE-1322860

PATIENT
  Sex: Female

DRUGS (20)
  1. METHOTREXATE [Concomitant]
     Active Substance: METHOTREXATE
     Route: 065
  2. RITUXIMAB [Suspect]
     Active Substance: RITUXIMAB
     Dosage: 1 G DAY 15
     Route: 041
     Dates: start: 20101130
  3. METHOTREXATE [Concomitant]
     Active Substance: METHOTREXATE
     Route: 065
  4. RITUXIMAB [Suspect]
     Active Substance: RITUXIMAB
     Dosage: 1 G DAY 15
     Route: 041
     Dates: start: 20081223
  5. RITUXIMAB [Suspect]
     Active Substance: RITUXIMAB
     Dosage: 1 G DAY 15
     Route: 041
     Dates: start: 20120614
  6. CORTANCYL [Concomitant]
     Active Substance: PREDNISONE
     Route: 065
  7. REMICADE [Concomitant]
     Active Substance: INFLIXIMAB
     Route: 065
     Dates: start: 20150608
  8. RITUXIMAB [Suspect]
     Active Substance: RITUXIMAB
     Dosage: 1 G DAY 15
     Route: 041
     Dates: start: 20090928
  9. RITUXIMAB [Suspect]
     Active Substance: RITUXIMAB
     Dosage: 1 G DAY 15
     Route: 041
     Dates: start: 20121022
  10. CORTANCYL [Concomitant]
     Active Substance: PREDNISONE
     Route: 065
  11. METHOTREXATE [Concomitant]
     Active Substance: METHOTREXATE
     Route: 065
  12. ABATACEPT [Concomitant]
     Active Substance: ABATACEPT
  13. RITUXIMAB [Suspect]
     Active Substance: RITUXIMAB
     Dosage: 1 G DAY 1
     Route: 041
     Dates: start: 20090914
  14. RITUXIMAB [Suspect]
     Active Substance: RITUXIMAB
     Dosage: 1 G DAY 1
     Route: 041
     Dates: start: 20101116
  15. METHOTREXATE [Concomitant]
     Active Substance: METHOTREXATE
     Route: 065
     Dates: start: 20150608
  16. RITUXIMAB [Suspect]
     Active Substance: RITUXIMAB
     Dosage: 1 G DAY 1
     Route: 041
     Dates: start: 20110531
  17. RITUXIMAB [Suspect]
     Active Substance: RITUXIMAB
     Dosage: 1 G DAY 1
     Route: 041
     Dates: start: 20121001
  18. CORTANCYL [Concomitant]
     Active Substance: PREDNISONE
     Route: 065
  19. RITUXIMAB [Suspect]
     Active Substance: RITUXIMAB
     Indication: RHEUMATOID ARTHRITIS
     Dosage: 1 G DAY 1
     Route: 041
     Dates: start: 20081208
  20. CORTANCYL [Concomitant]
     Active Substance: PREDNISONE
     Route: 065

REACTIONS (11)
  - Mitral valve calcification [Recovered/Resolved]
  - Humerus fracture [Recovered/Resolved]
  - Vitello-intestinal duct remnant [Recovered/Resolved]
  - Cholelithiasis [Recovered/Resolved]
  - Oral fungal infection [Recovered/Resolved]
  - Upper respiratory tract infection [Not Recovered/Not Resolved]
  - Urinary tract infection [Unknown]
  - Constipation [Recovered/Resolved]
  - Acute pulmonary oedema [Unknown]
  - Urinary tract infection [Recovered/Resolved]
  - Cystitis [Not Recovered/Not Resolved]

NARRATIVE: CASE EVENT DATE: 200904
